FAERS Safety Report 19539457 (Version 4)
Quarter: 2021Q4

REPORT INFORMATION
  Report Type: Report from Study
  Country: AR (occurrence: None)
  Receive Date: 20210714
  Receipt Date: 20211124
  Transmission Date: 20220303
  Serious: Yes (Other)
  Sender: FDA-Public Use
  Company Number: AR-ROCHE-2862491

PATIENT
  Age: 64 Year
  Sex: Female
  Weight: 60 kg

DRUGS (66)
  1. OCRELIZUMAB [Suspect]
     Active Substance: OCRELIZUMAB
     Indication: Relapsing-remitting multiple sclerosis
     Dosage: WEEK 1?SUBSEQUENT DOSES RECEIVED ON: 27/NOV/2012 (WEEK: 2) (LOT NO:604740)
     Route: 042
     Dates: start: 20121113
  2. OCRELIZUMAB [Suspect]
     Active Substance: OCRELIZUMAB
     Dosage: WEEK 24?SUBSEQUENT DOSE: 15/OCT/2013 (WEEK 48 AND LOT NO: 604769), 01/APR/2014 (WEEK 72 AND LOT NO:6
     Route: 042
     Dates: start: 20130430
  3. PLACEBO [Suspect]
     Active Substance: UNSPECIFIED INGREDIENT
     Indication: Relapsing-remitting multiple sclerosis
     Dosage: SUBSEQUENT DOSE: 17/SEP/2014, 07/OCT/2014
     Route: 058
     Dates: start: 20121113, end: 20141007
  4. OCRELIZUMAB [Suspect]
     Active Substance: OCRELIZUMAB
     Indication: Relapsing-remitting multiple sclerosis
     Dosage: OLE WEEK 0?SUBSEQUENT DOSE: 23/OCT/2014 (OLE WEEK 2, 260 ML, LOT NUMBER: 1128191)?AS 300 MG INFUSION
     Route: 042
     Dates: start: 20141009
  5. OCRELIZUMAB [Suspect]
     Active Substance: OCRELIZUMAB
     Dosage: SUBSEQUENT DOSE: 17/SEP/2015 (OLE WEEK 48, 520 ML, LOT NUMBER: 1147100), 09/MAR/2016 (OLE WEEK 72, 5
     Route: 042
     Dates: start: 20150326
  6. CLONAZEPAM [Concomitant]
     Active Substance: CLONAZEPAM
     Indication: Anxiety
     Dates: start: 2007
  7. DIPHENHYDRAMINE [Concomitant]
     Active Substance: DIPHENHYDRAMINE
     Indication: Premedication
     Dosage: BASELINE (WEEK 1)
     Dates: start: 20121113
  8. DIPHENHYDRAMINE [Concomitant]
     Active Substance: DIPHENHYDRAMINE
     Dosage: WEEK 2
     Dates: start: 20121127
  9. DIPHENHYDRAMINE [Concomitant]
     Active Substance: DIPHENHYDRAMINE
     Dosage: WEEK 24
     Dates: start: 20130430
  10. DIPHENHYDRAMINE [Concomitant]
     Active Substance: DIPHENHYDRAMINE
     Dosage: WEEK 48
     Dates: start: 20131015
  11. DIPHENHYDRAMINE [Concomitant]
     Active Substance: DIPHENHYDRAMINE
     Dosage: WEEK 72
     Dates: start: 20140401
  12. DIPHENHYDRAMINE [Concomitant]
     Active Substance: DIPHENHYDRAMINE
     Dosage: OLE-WEEK 0
     Dates: start: 20141009
  13. DIPHENHYDRAMINE [Concomitant]
     Active Substance: DIPHENHYDRAMINE
     Dosage: OLE-WEEK 2
     Dates: start: 20141023
  14. DIPHENHYDRAMINE [Concomitant]
     Active Substance: DIPHENHYDRAMINE
     Dosage: OLE-WEEK 24
     Dates: start: 20150326
  15. DIPHENHYDRAMINE [Concomitant]
     Active Substance: DIPHENHYDRAMINE
     Dosage: OLE-WEEK 48
     Dates: start: 20150917
  16. DIPHENHYDRAMINE [Concomitant]
     Active Substance: DIPHENHYDRAMINE
     Dosage: OLE-WEEK 72
     Dates: start: 20160309
  17. DIPHENHYDRAMINE [Concomitant]
     Active Substance: DIPHENHYDRAMINE
     Dosage: OLE-WEEK 96
     Dates: start: 20160812
  18. DIPHENHYDRAMINE [Concomitant]
     Active Substance: DIPHENHYDRAMINE
     Dosage: OLE-WEEK 120
     Dates: start: 20170127
  19. DIPHENHYDRAMINE [Concomitant]
     Active Substance: DIPHENHYDRAMINE
     Dosage: OLE-WEEK 144
     Dates: start: 20170714
  20. DIPHENHYDRAMINE [Concomitant]
     Active Substance: DIPHENHYDRAMINE
     Dosage: OLE-WEEK 168
     Dates: start: 20180120
  21. DIPHENHYDRAMINE [Concomitant]
     Active Substance: DIPHENHYDRAMINE
     Dosage: OLE-WEEK 192
     Dates: start: 20180704
  22. DIPHENHYDRAMINE [Concomitant]
     Active Substance: DIPHENHYDRAMINE
     Dosage: OLE-WEEK 216
     Dates: start: 20181214, end: 20181214
  23. DIPHENHYDRAMINE [Concomitant]
     Active Substance: DIPHENHYDRAMINE
     Dosage: OLE-WEEK 240
     Dates: start: 20190524
  24. DIPHENHYDRAMINE [Concomitant]
     Active Substance: DIPHENHYDRAMINE
     Dosage: OLE-WEEK 264
     Dates: start: 20191031
  25. DIPHENHYDRAMINE [Concomitant]
     Active Substance: DIPHENHYDRAMINE
     Dosage: OLE-WEEK 288
     Dates: start: 20200716
  26. DIPHENHYDRAMINE [Concomitant]
     Active Substance: DIPHENHYDRAMINE
     Dosage: OLE-WEEK 312
     Dates: start: 20201223
  27. ACETAMINOPHEN [Concomitant]
     Active Substance: ACETAMINOPHEN
     Indication: Premedication
     Dosage: BASELINE (WEEK 1)
     Dates: start: 20121113
  28. ACETAMINOPHEN [Concomitant]
     Active Substance: ACETAMINOPHEN
     Dosage: WEEK 2
     Dates: start: 20121127
  29. ACETAMINOPHEN [Concomitant]
     Active Substance: ACETAMINOPHEN
     Dosage: WEEK 24
     Dates: start: 20130430
  30. ACETAMINOPHEN [Concomitant]
     Active Substance: ACETAMINOPHEN
     Dosage: WEEK 48
     Dates: start: 20131015
  31. ACETAMINOPHEN [Concomitant]
     Active Substance: ACETAMINOPHEN
     Dosage: WEEK 72
     Dates: start: 20140401
  32. ACETAMINOPHEN [Concomitant]
     Active Substance: ACETAMINOPHEN
     Dosage: OLE-WEEK 0
     Dates: start: 20141009
  33. ACETAMINOPHEN [Concomitant]
     Active Substance: ACETAMINOPHEN
     Dosage: OLE-WEEK 2
     Dates: start: 20141023
  34. ACETAMINOPHEN [Concomitant]
     Active Substance: ACETAMINOPHEN
     Dosage: OLE-WEEK 24
     Dates: start: 20150326
  35. ACETAMINOPHEN [Concomitant]
     Active Substance: ACETAMINOPHEN
     Dosage: OLE-WEEK 48
     Dates: start: 20150917
  36. ACETAMINOPHEN [Concomitant]
     Active Substance: ACETAMINOPHEN
     Dosage: OLE-WEEK 72
     Dates: start: 20160309
  37. ACETAMINOPHEN [Concomitant]
     Active Substance: ACETAMINOPHEN
     Dosage: OLE-WEEK 96
     Dates: start: 20160812
  38. ACETAMINOPHEN [Concomitant]
     Active Substance: ACETAMINOPHEN
     Dosage: OLE-WEEK 120
     Dates: start: 20170127
  39. ACETAMINOPHEN [Concomitant]
     Active Substance: ACETAMINOPHEN
     Dosage: OLE-WEEK 144
     Dates: start: 20170714
  40. ACETAMINOPHEN [Concomitant]
     Active Substance: ACETAMINOPHEN
     Dosage: OLE-WEEK 168
     Dates: start: 20180120
  41. ACETAMINOPHEN [Concomitant]
     Active Substance: ACETAMINOPHEN
     Dosage: OLE-WEEK 192
     Dates: start: 20180704
  42. ACETAMINOPHEN [Concomitant]
     Active Substance: ACETAMINOPHEN
     Dosage: OLE-WEEK 216
     Dates: start: 20181214
  43. ACETAMINOPHEN [Concomitant]
     Active Substance: ACETAMINOPHEN
     Dosage: OLE-WEEK 240
     Dates: start: 20190524
  44. ACETAMINOPHEN [Concomitant]
     Active Substance: ACETAMINOPHEN
     Dosage: OLE-WEEK 264
     Dates: start: 20191031
  45. ACETAMINOPHEN [Concomitant]
     Active Substance: ACETAMINOPHEN
     Dosage: OLE-WEEK 288
     Dates: start: 20200716
  46. ACETAMINOPHEN [Concomitant]
     Active Substance: ACETAMINOPHEN
     Dosage: OLE-WEEK 312
     Dates: start: 20201223
  47. METHYLPREDNISOLONE [Concomitant]
     Active Substance: METHYLPREDNISOLONE
     Indication: Premedication
     Dosage: BASELINE (WEEK 1)
     Dates: start: 20121113, end: 20121113
  48. METHYLPREDNISOLONE [Concomitant]
     Active Substance: METHYLPREDNISOLONE
     Dosage: WEEK 2
     Dates: start: 20121127, end: 20121127
  49. METHYLPREDNISOLONE [Concomitant]
     Active Substance: METHYLPREDNISOLONE
     Dosage: WEEK 24
     Dates: start: 20130430, end: 20130430
  50. METHYLPREDNISOLONE [Concomitant]
     Active Substance: METHYLPREDNISOLONE
     Dosage: WEEK 48
     Dates: start: 20131015, end: 20131015
  51. METHYLPREDNISOLONE [Concomitant]
     Active Substance: METHYLPREDNISOLONE
     Dosage: WEEK 72
     Dates: start: 20140401, end: 20140401
  52. METHYLPREDNISOLONE [Concomitant]
     Active Substance: METHYLPREDNISOLONE
     Dosage: OLE-WEEK 0
     Dates: start: 20141009, end: 20141009
  53. METHYLPREDNISOLONE [Concomitant]
     Active Substance: METHYLPREDNISOLONE
     Dosage: OLE-WEEK 2
     Dates: start: 20141023, end: 20141023
  54. METHYLPREDNISOLONE [Concomitant]
     Active Substance: METHYLPREDNISOLONE
     Dosage: OLE-WEEK 24
     Dates: start: 20150326, end: 20150326
  55. METHYLPREDNISOLONE [Concomitant]
     Active Substance: METHYLPREDNISOLONE
     Dosage: OLE-WEEK 48
     Dates: start: 20150917, end: 20150917
  56. METHYLPREDNISOLONE [Concomitant]
     Active Substance: METHYLPREDNISOLONE
     Dosage: OLE-WEEK 72
     Dates: start: 20160309, end: 20160309
  57. METHYLPREDNISOLONE [Concomitant]
     Active Substance: METHYLPREDNISOLONE
     Dosage: OLE-WEEK 96
     Dates: start: 20160812, end: 20160812
  58. METHYLPREDNISOLONE [Concomitant]
     Active Substance: METHYLPREDNISOLONE
     Dosage: OLE-WEEK 120
     Dates: start: 20170127, end: 20170127
  59. METHYLPREDNISOLONE [Concomitant]
     Active Substance: METHYLPREDNISOLONE
     Dosage: OLE-WEEK 144
     Dates: start: 20170714, end: 20170714
  60. METHYLPREDNISOLONE [Concomitant]
     Active Substance: METHYLPREDNISOLONE
     Dosage: OLE-WEEK 168
     Dates: start: 20180120
  61. METHYLPREDNISOLONE [Concomitant]
     Active Substance: METHYLPREDNISOLONE
     Dosage: OLE-WEEK 192
     Dates: start: 20180704, end: 20180704
  62. METHYLPREDNISOLONE [Concomitant]
     Active Substance: METHYLPREDNISOLONE
     Dosage: OLE-WEEK 216
     Dates: start: 20181214, end: 20181214
  63. METHYLPREDNISOLONE [Concomitant]
     Active Substance: METHYLPREDNISOLONE
     Dosage: OLE-WEEK 240
     Dates: start: 20190524, end: 20190524
  64. METHYLPREDNISOLONE [Concomitant]
     Active Substance: METHYLPREDNISOLONE
     Dosage: OLE-WEEK 264
     Dates: start: 20191031, end: 20191031
  65. METHYLPREDNISOLONE [Concomitant]
     Active Substance: METHYLPREDNISOLONE
     Dosage: OLE-WEEK 288
     Dates: start: 20200716, end: 20200716
  66. METHYLPREDNISOLONE [Concomitant]
     Active Substance: METHYLPREDNISOLONE
     Dosage: OLE-WEEK 312
     Dates: start: 20201223, end: 20201223

REACTIONS (1)
  - Breast neoplasm [Not Recovered/Not Resolved]

NARRATIVE: CASE EVENT DATE: 20210521
